FAERS Safety Report 9993381 (Version 1)
Quarter: 2014Q1

REPORT INFORMATION
  Report Type: Report from Study
  Country: US (occurrence: US)
  Receive Date: 20140310
  Receipt Date: 20140310
  Transmission Date: 20141002
  Serious: Yes (Other)
  Sender: FDA-Public Use
  Company Number: PHEH2014US004623

PATIENT
  Age: 77 Year
  Sex: Male

DRUGS (11)
  1. EXELON PATCH [Suspect]
     Dosage: 13.3 MG, QD
     Route: 062
     Dates: start: 2011
  2. EXELON PATCH [Suspect]
     Dosage: 9.5 MG, QD
     Route: 062
  3. SIMVASTATIN [Suspect]
     Indication: BLOOD CHOLESTEROL ABNORMAL
     Dosage: 20 MG, UNK
  4. PRAMIPEXOLE [Suspect]
     Dosage: UNK UKN, UNK
  5. CLOPIDOGREL [Suspect]
     Dosage: UNK UKN, UNK
  6. ASPIRIN [Suspect]
     Dosage: (LOW DOSE)
  7. VIT D3 [Suspect]
     Dosage: UNK UKN, UNK
  8. ENALAPRIL [Concomitant]
     Dosage: UNK UKN, UNK
  9. OMEPRAZOLE [Concomitant]
     Dosage: UNK UKN, UNK
  10. METOPROLOL SUCC CT [Concomitant]
     Indication: BLOOD PRESSURE ABNORMAL
     Dosage: 12.5 MG, UNK
  11. AZILECT [Concomitant]
     Dosage: 5 MG, UNK

REACTIONS (5)
  - Parkinson^s disease [Unknown]
  - Gait disturbance [Unknown]
  - Vascular dementia [Unknown]
  - Amnesia [Unknown]
  - Disturbance in attention [Unknown]
